FAERS Safety Report 10445490 (Version 2)
Quarter: 2015Q4

REPORT INFORMATION
  Report Type: Spontaneous
  Country: US (occurrence: US)
  Receive Date: 20140910
  Receipt Date: 20151215
  Transmission Date: 20160304
  Serious: Yes (Hospitalization, Other)
  Sender: FDA-Public Use
  Company Number: US-LUNDBECK-DKLU1103312

PATIENT
  Sex: Male
  Weight: 12 kg

DRUGS (14)
  1. SABRIL [Suspect]
     Active Substance: VIGABATRIN
     Route: 048
  2. LEVETIRACETAM. [Concomitant]
     Active Substance: LEVETIRACETAM
     Indication: SEIZURE
     Route: 065
  3. LEVETIRACETAM. [Concomitant]
     Active Substance: LEVETIRACETAM
     Route: 065
  4. PHENOBARBITAL. [Concomitant]
     Active Substance: PHENOBARBITAL
     Route: 065
  5. SABRIL [Suspect]
     Active Substance: VIGABATRIN
     Dosage: 250MG
     Route: 048
     Dates: start: 20140812
  6. MIDAZOLAM [Concomitant]
     Active Substance: MIDAZOLAM\MIDAZOLAM HYDROCHLORIDE
     Indication: SEIZURE
     Dosage: IN EACH NOSTRIL
     Route: 045
  7. SABRIL [Suspect]
     Active Substance: VIGABATRIN
     Route: 048
     Dates: start: 20140819, end: 20140828
  8. PHENOBARBITAL. [Concomitant]
     Active Substance: PHENOBARBITAL
     Indication: SEIZURE
     Route: 065
  9. SABRIL [Suspect]
     Active Substance: VIGABATRIN
     Route: 048
  10. SABRIL [Suspect]
     Active Substance: VIGABATRIN
     Route: 048
     Dates: start: 20140818
  11. SABRIL [Suspect]
     Active Substance: VIGABATRIN
     Indication: INFANTILE SPASMS
     Dosage: 125MG
     Route: 048
     Dates: start: 20140804
  12. SABRIL [Suspect]
     Active Substance: VIGABATRIN
     Route: 048
  13. DILANTIN [Concomitant]
     Active Substance: PHENYTOIN
     Indication: SEIZURE
     Route: 065
  14. LYRICA [Concomitant]
     Active Substance: PREGABALIN
     Indication: SEIZURE
     Route: 065

REACTIONS (7)
  - Status epilepticus [Not Recovered/Not Resolved]
  - Lethargy [Recovered/Resolved]
  - Pneumonia [Unknown]
  - Irritability [Unknown]
  - Somnolence [Recovering/Resolving]
  - Psychomotor hyperactivity [Recovered/Resolved]
  - Infantile spasms [Not Recovered/Not Resolved]
